FAERS Safety Report 25439827 (Version 2)
Quarter: 2025Q3

REPORT INFORMATION
  Report Type: Report from Study
  Country: US (occurrence: US)
  Receive Date: 20250616
  Receipt Date: 20250802
  Transmission Date: 20251021
  Serious: Yes (Hospitalization)
  Sender: ALEXION PHARMACEUTICALS
  Company Number: US-AstraZeneca-CH-00889912A

PATIENT
  Sex: Female
  Weight: 178 kg

DRUGS (1)
  1. CAPIVASERTIB [Suspect]
     Active Substance: CAPIVASERTIB
     Indication: Breast cancer female
     Dosage: 2 TABLETS BY MOUTH TWICE DAILY ON, THEN 3 DAYS OFF EACH WEEK
     Dates: start: 20250408

REACTIONS (1)
  - Rib fracture [Unknown]
